FAERS Safety Report 7545968-X (Version None)
Quarter: 2011Q2

REPORT INFORMATION
  Report Type: 
  Country: None (occurrence: None)
  Receive Date: 20110614
  Receipt Date: 20110609
  Transmission Date: 20111010
  Serious: Yes (Life-Threatening, Hospitalization)
  Sender: FDA-Public Use
  Company Number: HR-PFIZER INC-2011127138

PATIENT
  Age: 75 Year
  Sex: Male

DRUGS (3)
  1. LACIDIPINE [Concomitant]
     Indication: HYPERTENSION
     Route: 048
  2. RAMIPRIL [Suspect]
     Dosage: 5 MG, 1X/DAY
     Route: 048
     Dates: start: 20040101
  3. ESTRACYT [Suspect]
     Dosage: 140 MG, 4X/DAY
     Route: 048
     Dates: start: 20080101, end: 20100101

REACTIONS (3)
  - TONGUE OEDEMA [None]
  - ASPHYXIA [None]
  - LARYNGEAL OEDEMA [None]
